FAERS Safety Report 8012635-8 (Version None)
Quarter: 2011Q4

REPORT INFORMATION
  Report Type: 
  Country: None (occurrence: None)
  Receive Date: 20111229
  Receipt Date: 20111222
  Transmission Date: 20120403
  Serious: Yes (Hospitalization, Other)
  Sender: FDA-Public Use
  Company Number: US-JNJFOC-20111013380

PATIENT
  Sex: Female
  Weight: 61.24 kg

DRUGS (1)
  1. REMICADE [Suspect]
     Indication: CROHN'S DISEASE
     Route: 042
     Dates: start: 20110914, end: 20110914

REACTIONS (13)
  - GRANULOMA [None]
  - CONFUSIONAL STATE [None]
  - CHILLS [None]
  - URTICARIA [None]
  - HEADACHE [None]
  - NAUSEA [None]
  - MALAISE [None]
  - ABNORMAL SENSATION IN EYE [None]
  - HYPERHIDROSIS [None]
  - VOMITING [None]
  - PRURITUS [None]
  - GENITAL RASH [None]
  - BRAIN OEDEMA [None]
